FAERS Safety Report 22320573 (Version 1)
Quarter: 2023Q2

REPORT INFORMATION
  Report Type: Report from Study
  Country: US (occurrence: US)
  Receive Date: 20230515
  Receipt Date: 20230515
  Transmission Date: 20230722
  Serious: Yes (Other)
  Sender: FDA-Public Use
  Company Number: US-002147023-NVSC2023US107830

PATIENT
  Sex: Female
  Weight: 93.89 kg

DRUGS (13)
  1. BETAMETHASONE DIPROPIONATE [Suspect]
     Active Substance: BETAMETHASONE DIPROPIONATE
     Indication: Psoriasis
     Dosage: 0.05 %
     Route: 061
  2. CLOBETASOL [Suspect]
     Active Substance: CLOBETASOL
     Indication: Psoriasis
     Dosage: 0.05 %
     Route: 061
  3. CLOBETASOL [Suspect]
     Active Substance: CLOBETASOL
     Indication: Psoriasis
     Dosage: 0.05 %, SCALP SOLUTION
     Route: 065
  4. ROSUVASTATIN [Suspect]
     Active Substance: ROSUVASTATIN
     Indication: Psoriasis
     Dosage: 40 MG
     Route: 048
  5. VALSARTAN [Suspect]
     Active Substance: VALSARTAN
     Indication: Psoriasis
     Dosage: 160 MG
     Route: 048
  6. TACROLIMUS [Suspect]
     Active Substance: TACROLIMUS
     Indication: Psoriasis
     Dosage: 0.1 %
     Route: 061
  7. ALBUTEROL SULFATE [Suspect]
     Active Substance: ALBUTEROL SULFATE
     Indication: Psoriasis
     Dosage: 90 UG
     Route: 065
  8. METFORMIN [Suspect]
     Active Substance: METFORMIN HYDROCHLORIDE
     Indication: Psoriasis
     Dosage: 1000 MG
     Route: 048
  9. NIFEDIPINE [Suspect]
     Active Substance: NIFEDIPINE
     Indication: Psoriasis
     Dosage: 30 MG, EXTENDED RELEASE TABLET
     Route: 048
  10. SIMVASTATIN [Suspect]
     Active Substance: SIMVASTATIN
     Indication: Psoriasis
     Dosage: 80 MG
     Route: 048
  11. FAMOTIDINE [Suspect]
     Active Substance: FAMOTIDINE
     Indication: Psoriasis
     Dosage: UNK
     Route: 065
  12. HALOBETASOL PROPIONATE [Suspect]
     Active Substance: HALOBETASOL PROPIONATE
     Indication: Psoriasis
     Dosage: 0.05 %
     Route: 061
  13. OTEZLA [Concomitant]
     Active Substance: APREMILAST
     Indication: Product used for unknown indication
     Dosage: UNK
     Route: 065

REACTIONS (5)
  - Psoriatic arthropathy [Unknown]
  - Post inflammatory pigmentation change [Unknown]
  - Psoriasis [Unknown]
  - Treatment failure [Unknown]
  - Product use in unapproved indication [Unknown]
